FAERS Safety Report 9028873 (Version 1)
Quarter: 2013Q1

REPORT INFORMATION
  Report Type: Spontaneous
  Country: DE (occurrence: DE)
  Receive Date: 20130124
  Receipt Date: 20130124
  Transmission Date: 20140127
  Serious: Yes (Other)
  Sender: FDA-Public Use
  Company Number: DE-BAUSCH-BL-2013-000124

PATIENT
  Sex: Male

DRUGS (1)
  1. GENTAMICIN [Suspect]
     Indication: EYE IRRITATION
     Route: 047

REACTIONS (1)
  - Eczema eyelids [Recovered/Resolved]
